FAERS Safety Report 7296687-9 (Version None)
Quarter: 2011Q1

REPORT INFORMATION
  Report Type: 
  Country: None (occurrence: None)
  Receive Date: 20110216
  Receipt Date: 20110124
  Transmission Date: 20110831
  Serious: No
  Sender: FDA-Public Use
  Company Number: US-B.I. PHARMACEUTICALS,INC./RIDGEFIELD-2011-BP-02530BP

PATIENT
  Sex: Female

DRUGS (8)
  1. PRADAXA [Suspect]
     Indication: ATRIAL FIBRILLATION
     Dosage: 150 MG
     Route: 048
     Dates: start: 20110123
  2. AVODART [Concomitant]
     Indication: PROSTATOMEGALY
  3. IMDUR [Concomitant]
     Indication: CARDIAC FAILURE
  4. ASPIRIN [Concomitant]
     Indication: PROPHYLAXIS
  5. ZOCOR [Concomitant]
     Indication: BLOOD CHOLESTEROL INCREASED
  6. BUMEX [Concomitant]
     Indication: CARDIAC FAILURE
  7. SYNTHROID [Concomitant]
     Indication: HYPOTHYROIDISM
  8. OMEPRAZOLE [Concomitant]
     Indication: GASTROOESOPHAGEAL REFLUX DISEASE

REACTIONS (1)
  - THROAT IRRITATION [None]
